FAERS Safety Report 4287247-2 (Version None)
Quarter: 2004Q1

REPORT INFORMATION
  Report Type: 
  Country: None (occurrence: None)
  Receive Date: 20040126
  Receipt Date: 20030827
  Transmission Date: 20041129
  Serious: No
  Sender: FDA-Public Use
  Company Number: USA030640089

PATIENT
  Age: 76 Year
  Sex: Female
  Weight: 67 kg

DRUGS (4)
  1. FORTEO [Suspect]
     Indication: OSTEOPOROSIS
     Dosage: 20 UG/IN THE EVENING
     Dates: start: 20030101, end: 20030601
  2. MULTIVITAMIN [Concomitant]
  3. TRENTAL [Concomitant]
  4. VIOXX [Concomitant]

REACTIONS (2)
  - BLOOD PRESSURE ABNORMAL [None]
  - DIZZINESS [None]
